FAERS Safety Report 24794915 (Version 5)
Quarter: 2025Q2

REPORT INFORMATION
  Report Type: Spontaneous
  Country: US (occurrence: US)
  Receive Date: 20241231
  Receipt Date: 20250521
  Transmission Date: 20250717
  Serious: Yes (Other)
  Sender: PFIZER
  Company Number: US-PFIZER INC-202400334941

PATIENT
  Age: 54 Year
  Sex: Female
  Weight: 104.3 kg

DRUGS (8)
  1. IBRANCE [Suspect]
     Active Substance: PALBOCICLIB
     Indication: Breast cancer
     Route: 048
     Dates: start: 20240327
  2. ANASTROZOLE [Concomitant]
     Active Substance: ANASTROZOLE
  3. CALCIUM\VITAMIN D [Concomitant]
     Active Substance: CALCIUM\VITAMIN D
  4. DICLOFENAC [Concomitant]
     Active Substance: DICLOFENAC
  5. IBUPROFEN [Concomitant]
     Active Substance: IBUPROFEN
  6. LIDOCAINE [Concomitant]
     Active Substance: LIDOCAINE
  7. TYLENOL PM [Concomitant]
     Active Substance: ACETAMINOPHEN\DIPHENHYDRAMINE
  8. VITAMIN D2 [Concomitant]
     Active Substance: ERGOCALCIFEROL

REACTIONS (7)
  - Neuropathy peripheral [Unknown]
  - White blood cell count decreased [Unknown]
  - Diarrhoea [Unknown]
  - Dehydration [Unknown]
  - Blood creatinine increased [Unknown]
  - Fatigue [Unknown]
  - Sleep disorder [Unknown]
